FAERS Safety Report 5525906-1 (Version None)
Quarter: 2007Q4

REPORT INFORMATION
  Report Type: 
  Country: None (occurrence: None)
  Receive Date: 20071126
  Receipt Date: 20071115
  Transmission Date: 20080405
  Serious: Yes (Hospitalization, Other)
  Sender: FDA-Public Use
  Company Number: ES-PFIZER INC-2007096196

PATIENT
  Sex: Male

DRUGS (2)
  1. METHYLPREDNISOLONE ACETATE [Suspect]
     Dates: start: 20070803, end: 20070805
  2. MYCOPHENOLATE MOFETIL [Suspect]
     Indication: HEART TRANSPLANT
     Dosage: DAILY DOSE:1500MG-FREQ:FREQUENCY: BID

REACTIONS (2)
  - HEART TRANSPLANT REJECTION [None]
  - HYPERGLYCAEMIA [None]
